FAERS Safety Report 7338282-9 (Version None)
Quarter: 2011Q1

REPORT INFORMATION
  Report Type: 
  Country: None (occurrence: None)
  Receive Date: 20110224
  Receipt Date: 20110210
  Transmission Date: 20110831
  Serious: Yes (Hospitalization)
  Sender: FDA-Public Use
  Company Number: DSJ-2011-02962

PATIENT
  Age: 78 Year
  Sex: Female

DRUGS (1)
  1. BENICAR [Suspect]
     Indication: HYPERTENSION
     Dosage: (1 IN 1 D), PER ORAL
     Route: 048

REACTIONS (1)
  - ANTICOAGULANT THERAPY [None]
